FAERS Safety Report 6789021-1 (Version None)
Quarter: 2010Q2

REPORT INFORMATION
  Report Type: 
  Country: None (occurrence: None)
  Receive Date: 20100623
  Receipt Date: 20080617
  Transmission Date: 20101027
  Serious: No
  Sender: FDA-Public Use
  Company Number: US-PFIZER INC-2008051072

PATIENT
  Sex: Female

DRUGS (3)
  1. GEODON [Suspect]
     Indication: BIPOLAR DISORDER
     Route: 048
  2. GEODON [Suspect]
     Indication: MAJOR DEPRESSION
  3. LITHIUM [Concomitant]

REACTIONS (1)
  - EXTRAPYRAMIDAL DISORDER [None]
